FAERS Safety Report 9072443 (Version 2)
Quarter: 2013Q1

REPORT INFORMATION
  Report Type: Spontaneous
  Country: FR (occurrence: FR)
  Receive Date: 20130207
  Receipt Date: 20130215
  Transmission Date: 20140127
  Serious: Yes (Hospitalization)
  Sender: FDA-Public Use
  Company Number: FR-PFIZER INC-2013043399

PATIENT
  Age: 60 Year
  Sex: Female

DRUGS (2)
  1. AROMASINE [Suspect]
     Indication: BREAST CANCER METASTATIC
     Dosage: 25 MG, DAILY
     Route: 048
     Dates: start: 20121128
  2. AFINITOR [Suspect]
     Indication: BREAST CANCER METASTATIC
     Dosage: 5 MG, DAILY
     Route: 048
     Dates: start: 20121128

REACTIONS (2)
  - Vascular purpura [Recovered/Resolved]
  - Vasculitis [Recovered/Resolved]
